FAERS Safety Report 6516786-6 (Version None)
Quarter: 2009Q4

REPORT INFORMATION
  Report Type: 
  Country: None (occurrence: None)
  Receive Date: 20091223
  Receipt Date: 20091216
  Transmission Date: 20100525
  Serious: Yes (Hospitalization, Other)
  Sender: FDA-Public Use
  Company Number: US-ABBOTT-09P-163-0614935-00

PATIENT
  Sex: Female
  Weight: 112.14 kg

DRUGS (10)
  1. HUMIRA [Suspect]
     Indication: RHEUMATOID ARTHRITIS
     Dates: start: 20070302, end: 20090914
  2. HUMIRA [Suspect]
     Dates: start: 20091116
  3. METHOTREXATE [Concomitant]
     Indication: RHEUMATOID ARTHRITIS
  4. CELEBREX [Concomitant]
     Indication: RHEUMATOID ARTHRITIS
  5. FOLIC ACID [Concomitant]
     Indication: RHEUMATOID ARTHRITIS
  6. NEXIUM [Concomitant]
     Indication: GASTROOESOPHAGEAL REFLUX DISEASE
  7. NEXIUM [Concomitant]
     Indication: HIATUS HERNIA
  8. PREDNISONE [Concomitant]
     Indication: RHEUMATOID ARTHRITIS
  9. NORCO [Concomitant]
     Indication: PAIN
  10. AMBIEN [Concomitant]
     Indication: SLEEP DISORDER

REACTIONS (3)
  - ARTHRALGIA [None]
  - JOINT SPRAIN [None]
  - MENISCUS LESION [None]
